FAERS Safety Report 16245787 (Version 1)
Quarter: 2019Q2

REPORT INFORMATION
  Report Type: Spontaneous
  Country: TW (occurrence: TW)
  Receive Date: 20190426
  Receipt Date: 20190426
  Transmission Date: 20190711
  Serious: Yes (Other)
  Sender: FDA-Public Use
  Company Number: TW-ELI_LILLY_AND_COMPANY-TW201904012470

PATIENT
  Age: 66 Year
  Sex: Male
  Weight: 65 kg

DRUGS (13)
  1. ERBITUX [Suspect]
     Active Substance: CETUXIMAB
     Indication: HYPOPHARYNGEAL CANCER
     Dosage: UNK, UNKNOWN, 670 TO 700 MG (100 MG/20 ML/VIAL)
     Route: 041
     Dates: start: 20170531
  2. KEYTRUDA [Concomitant]
     Active Substance: PEMBROLIZUMAB
     Indication: HYPOPHARYNGEAL CANCER
     Dosage: 50 MG, UNK, ST, 50 MG/VIAL
     Route: 041
     Dates: start: 20170422
  3. KEYTRUDA [Concomitant]
     Active Substance: PEMBROLIZUMAB
     Dosage: 50 MG, UNK
     Route: 041
     Dates: start: 20170511
  4. KEMOPLAT [Concomitant]
     Active Substance: CISPLATIN
     Dosage: 87 MG
     Dates: start: 20170511
  5. 5-FU [FLUOROURACIL] [Concomitant]
     Active Substance: FLUOROURACIL
     Dosage: 835 TO 880 UNK
     Dates: start: 20170531
  6. KEMOPLAT [Concomitant]
     Active Substance: CISPLATIN
     Indication: HYPOPHARYNGEAL CANCER
     Dosage: 52 MG, UNK
     Route: 041
     Dates: start: 20160822, end: 20161014
  7. KEYTRUDA [Concomitant]
     Active Substance: PEMBROLIZUMAB
     Dosage: 50 MG, UNK
     Route: 041
     Dates: start: 20170531
  8. KEMOPLAT [Concomitant]
     Active Substance: CISPLATIN
     Dosage: 88 MG, UNKNOWN
     Dates: start: 20170422
  9. 5-FU [FLUOROURACIL] [Concomitant]
     Active Substance: FLUOROURACIL
     Dosage: 855 MG, UNK
     Dates: start: 20180226
  10. ERBITUX [Suspect]
     Active Substance: CETUXIMAB
     Dosage: 300 MG, UNK
     Route: 041
  11. 5-FU [FLUOROURACIL] [Concomitant]
     Active Substance: FLUOROURACIL
     Indication: HYPOPHARYNGEAL CANCER
     Dosage: 850 MG, UNK, 50MG/ML
     Dates: start: 20170422
  12. 5-FU [FLUOROURACIL] [Concomitant]
     Active Substance: FLUOROURACIL
     Dosage: 860 MG, UNK
     Dates: start: 20170511
  13. KEMOPLAT [Concomitant]
     Active Substance: CISPLATIN
     Dosage: 85 TO 90 UNK
     Dates: start: 20170531

REACTIONS (11)
  - Insomnia [Unknown]
  - Fatigue [Unknown]
  - Rash [Unknown]
  - Anaemia [Unknown]
  - Thrombocytopenia [Unknown]
  - Alopecia [Unknown]
  - Nausea [Unknown]
  - Neuropathy peripheral [Unknown]
  - Stomatitis [Unknown]
  - Leukopenia [Unknown]
  - Pruritus [Unknown]

NARRATIVE: CASE EVENT DATE: 20170531
